FAERS Safety Report 8272933-X (Version None)
Quarter: 2012Q2

REPORT INFORMATION
  Report Type: 
  Country: None (occurrence: None)
  Receive Date: 20120411
  Receipt Date: 20120329
  Transmission Date: 20120825
  Serious: No
  Sender: FDA-Public Use
  Company Number: US-ELI_LILLY_AND_COMPANY-US201201009170

PATIENT
  Age: 48 Year
  Sex: Female
  Weight: 56.689 kg

DRUGS (7)
  1. NEURONTIN                               /USA/ [Concomitant]
  2. CYMBALTA [Suspect]
     Indication: MUSCULOSKELETAL PAIN
     Dosage: 30 MG, EACH EVENING
  3. LEVOTHYROXINE SODIUM [Concomitant]
  4. CYMBALTA [Suspect]
     Dosage: 60 MG, QD
  5. CYMBALTA [Suspect]
     Dosage: UNK, UNKNOWN
  6. FENTANYL CITRATE [Concomitant]
  7. NORCO [Concomitant]
     Dosage: UNK, TID

REACTIONS (5)
  - FORMICATION [None]
  - HALLUCINATION, TACTILE [None]
  - OPEN WOUND [None]
  - DERMATILLOMANIA [None]
  - PRURITUS [None]
